FAERS Safety Report 10311178 (Version 1)
Quarter: 2014Q3

REPORT INFORMATION
  Report Type: Spontaneous
  Country: US (occurrence: None)
  Receive Date: 20140716
  Receipt Date: 20140716
  Transmission Date: 20150326
  Serious: Yes (Other)
  Sender: FDA-Public Use
  Company Number: None

PATIENT
  Age: 77 Year
  Sex: Male

DRUGS (1)
  1. ATORVASTATIN CALCIUM. [Suspect]
     Active Substance: ATORVASTATIN CALCIUM
     Indication: HYPERCHOLESTEROLAEMIA
     Dosage: 1 PILL, QD, ORAL
     Route: 048
     Dates: start: 20140527, end: 20140710

REACTIONS (3)
  - Product quality issue [None]
  - Low density lipoprotein increased [None]
  - Product substitution issue [None]

NARRATIVE: CASE EVENT DATE: 20140714
